FAERS Safety Report 20783153 (Version 1)
Quarter: 2022Q2

REPORT INFORMATION
  Report Type: Spontaneous
  Country: US (occurrence: US)
  Receive Date: 20220504
  Receipt Date: 20220504
  Transmission Date: 20220721
  Serious: No
  Sender: FDA-Public Use
  Company Number: US-NOVARTISTESTPH-NVSC2022US101843

PATIENT

DRUGS (2)
  1. TABRECTA [Suspect]
     Active Substance: CAPMATINIB
     Indication: Non-small cell lung cancer
     Dosage: 400 MG, BID
     Route: 065
  2. TABRECTA [Suspect]
     Active Substance: CAPMATINIB
     Dosage: 200 MG, BID (REDUCED DOSE/ALSO HAD DOSE INTERRUPTIONS)
     Route: 065

REACTIONS (1)
  - Oedema [Unknown]
